FAERS Safety Report 10412213 (Version 1)
Quarter: 2014Q3

REPORT INFORMATION
  Report Type: Spontaneous
  Country: US (occurrence: None)
  Receive Date: 20140826
  Receipt Date: 20140826
  Transmission Date: 20150326
  Serious: No
  Sender: FDA-Public Use
  Company Number: None

PATIENT
  Age: 57 Year
  Sex: Female

DRUGS (1)
  1. SUTENT [Suspect]
     Active Substance: SUNITINIB MALATE
     Indication: SMALL INTESTINE CARCINOMA
     Route: 048
     Dates: start: 20140520, end: 20140825

REACTIONS (7)
  - Contusion [None]
  - Dysgeusia [None]
  - Decreased appetite [None]
  - Fatigue [None]
  - Platelet count decreased [None]
  - Jaundice [None]
  - Dry mouth [None]
